FAERS Safety Report 6759543-8 (Version None)
Quarter: 2010Q2

REPORT INFORMATION
  Report Type: 
  Country: None (occurrence: None)
  Receive Date: 20100604
  Receipt Date: 20100524
  Transmission Date: 20101027
  Serious: Yes (Life-Threatening)
  Sender: FDA-Public Use
  Company Number: 1-22748017

PATIENT
  Age: 19 Year
  Sex: Female
  Weight: 69.8539 kg

DRUGS (3)
  1. FENTANYL [Suspect]
     Indication: ANAESTHESIA
     Dosage: 100 MCG, ONCE, INTRAVENOUS
     Route: 042
  2. PROPOFOL [Suspect]
     Indication: INDUCTION OF ANAESTHESIA
     Dosage: 150 MG TOTAL DOSE, INTRAVENOUS
     Route: 042
  3. MIDAZOLAM HCL [Concomitant]

REACTIONS (11)
  - ACUTE MYOCARDIAL INFARCTION [None]
  - ANAESTHETIC COMPLICATION CARDIAC [None]
  - BRADYCARDIA [None]
  - BRAIN INJURY [None]
  - CARDIAC FAILURE ACUTE [None]
  - CARDIOGENIC SHOCK [None]
  - ELECTROCARDIOGRAM T WAVE AMPLITUDE DECREASED [None]
  - MYOCARDIAL DEPRESSION [None]
  - NO THERAPEUTIC RESPONSE [None]
  - PULMONARY OEDEMA [None]
  - TROPONIN INCREASED [None]
